FAERS Safety Report 5360088-0 (Version None)
Quarter: 2007Q2

REPORT INFORMATION
  Report Type: 
  Country: None (occurrence: None)
  Receive Date: 20070618
  Receipt Date: 20061110
  Transmission Date: 20071010
  Serious: Yes (Other)
  Sender: FDA-Public Use
  Company Number: US-ASTRAZENECA-2006UW23430

PATIENT
  Age: 61 Year
  Sex: Female
  Weight: 73.5 kg

DRUGS (3)
  1. FASLODEX [Suspect]
     Indication: PROPHYLAXIS
     Route: 030
  2. HYDROCODONE BITARTRATE [Concomitant]
  3. CALCIUM CHLORIDE [Concomitant]

REACTIONS (2)
  - CARBOHYDRATE ANTIGEN 27.29 INCREASED [None]
  - DRUG INEFFECTIVE [None]
